FAERS Safety Report 12859621 (Version 2)
Quarter: 2017Q1

REPORT INFORMATION
  Report Type: Spontaneous
  Country: US (occurrence: US)
  Receive Date: 20161018
  Receipt Date: 20170315
  Transmission Date: 20170428
  Serious: No
  Sender: FDA-Public Use
  Company Number: US-ACTELION-A-NJ2016-143616

PATIENT
  Age: 53 Year
  Sex: Male

DRUGS (12)
  1. VALCHLOR [Suspect]
     Active Substance: MECHLORETHAMINE
     Dosage: TWICE A WEEK
     Route: 061
  2. ATORVASTATIN CALCIUM. [Concomitant]
     Active Substance: ATORVASTATIN CALCIUM
  3. VALCHLOR [Suspect]
     Active Substance: MECHLORETHAMINE
     Indication: MYCOSIS FUNGOIDES
     Dosage: 0.016%, QD
     Route: 061
     Dates: start: 20160909, end: 20161001
  4. NIZORAL [Concomitant]
     Active Substance: KETOCONAZOLE
  5. HYDROCHLOROTHIAZIDE. [Concomitant]
     Active Substance: HYDROCHLOROTHIAZIDE
  6. HYDROCODONE BITARTRATE AND ACETAMINOPHEN [Concomitant]
     Active Substance: ACETAMINOPHEN\HYDROCODONE BITARTRATE
  7. AMETHIA [Concomitant]
     Active Substance: ETHINYL ESTRADIOL\LEVONORGESTREL
  8. CLOBETASOL [Concomitant]
     Active Substance: CLOBETASOL
  9. KETOCONAZOLE. [Concomitant]
     Active Substance: KETOCONAZOLE
  10. OXYCODONE [Concomitant]
     Active Substance: OXYCODONE
  11. IBUPROFEN. [Concomitant]
     Active Substance: IBUPROFEN
  12. AMLODIPINE [Concomitant]
     Active Substance: AMLODIPINE BESYLATE

REACTIONS (5)
  - Pruritus [Recovering/Resolving]
  - Erythema [Recovering/Resolving]
  - Application site erosion [Unknown]
  - Skin burning sensation [Recovering/Resolving]
  - Condition aggravated [Recovering/Resolving]

NARRATIVE: CASE EVENT DATE: 20160930
